FAERS Safety Report 22634401 (Version 4)
Quarter: 2025Q1

REPORT INFORMATION
  Report Type: Spontaneous
  Country: US (occurrence: US)
  Receive Date: 20230623
  Receipt Date: 20250218
  Transmission Date: 20250409
  Serious: Yes (Other)
  Sender: GLAXOSMITHKLINE
  Company Number: US-GSK-US2023084419

PATIENT

DRUGS (1)
  1. NUCALA [Suspect]
     Active Substance: MEPOLIZUMAB
     Indication: Nasal polyps
     Dosage: 100 MG, Q4W (UPPER ARM)
     Route: 058

REACTIONS (8)
  - Pneumonia [Not Recovered/Not Resolved]
  - Multiple fractures [Unknown]
  - Sinusitis [Not Recovered/Not Resolved]
  - Injection site pain [Unknown]
  - Hand fracture [Unknown]
  - Back disorder [Unknown]
  - Fall [Unknown]
  - Illness [Unknown]

NARRATIVE: CASE EVENT DATE: 20241225
